FAERS Safety Report 25940729 (Version 1)
Quarter: 2025Q4

REPORT INFORMATION
  Report Type: Spontaneous
  Country: US (occurrence: None)
  Receive Date: 20251017
  Receipt Date: 20251017
  Transmission Date: 20260117
  Serious: Yes (Disabling)
  Sender: FDA-CTU
  Company Number: None

PATIENT
  Age: 32 Year
  Sex: Male
  Weight: 59.4 kg

DRUGS (2)
  1. ZOLOFT [Suspect]
     Active Substance: SERTRALINE HYDROCHLORIDE
     Indication: Depression
  2. TRINTELLIX [Suspect]
     Active Substance: VORTIOXETINE HYDROBROMIDE

REACTIONS (16)
  - Product communication issue [None]
  - Suicidal ideation [None]
  - Flat affect [None]
  - Anhedonia [None]
  - Flat affect [None]
  - Anorgasmia [None]
  - Sexual dysfunction [None]
  - Sexual dysfunction [None]
  - Condition aggravated [None]
  - Feeling abnormal [None]
  - Depression [None]
  - Gastrointestinal disorder [None]
  - Abdominal distension [None]
  - Cognitive disorder [None]
  - Inflammation [None]
  - Gastrointestinal injury [None]

NARRATIVE: CASE EVENT DATE: 20170101
